FAERS Safety Report 23961439 (Version 1)
Quarter: 2024Q2

REPORT INFORMATION
  Report Type: Spontaneous
  Country: AU (occurrence: AU)
  Receive Date: 20240611
  Receipt Date: 20240611
  Transmission Date: 20240716
  Serious: Yes (Hospitalization)
  Sender: FDA-Public Use
  Company Number: AU-BAYER-2024A083762

PATIENT
  Age: 57 Year
  Sex: Male

DRUGS (2)
  1. GADOBUTROL [Suspect]
     Active Substance: GADOBUTROL
     Indication: Magnetic resonance imaging
     Dosage: 15 ML, ONCE
     Route: 042
  2. GADOBUTROL [Suspect]
     Active Substance: GADOBUTROL
     Indication: Magnetic resonance imaging head

REACTIONS (3)
  - Eye swelling [None]
  - Dyspnoea [None]
  - Paraesthesia oral [None]

NARRATIVE: CASE EVENT DATE: 20240607
